FAERS Safety Report 6837325-6 (Version None)
Quarter: 2010Q3

REPORT INFORMATION
  Report Type: 
  Country: None (occurrence: None)
  Receive Date: 20100713
  Receipt Date: 20070508
  Transmission Date: 20110219
  Serious: No
  Sender: FDA-Public Use
  Company Number: US-PFIZER INC-2007038483

PATIENT
  Sex: Female

DRUGS (6)
  1. CHANTIX [Suspect]
  2. OPIOIDS [Concomitant]
  3. CYMBALTA [Concomitant]
  4. DRUG, UNSPECIFIED [Concomitant]
     Indication: THYROID DISORDER
  5. TOPROL-XL [Concomitant]
  6. ZOCOR [Concomitant]

REACTIONS (1)
  - SLEEP DISORDER [None]
